FAERS Safety Report 10247663 (Version 1)
Quarter: 2014Q2

REPORT INFORMATION
  Report Type: Spontaneous
  Country: PL (occurrence: PL)
  Receive Date: 20140619
  Receipt Date: 20140619
  Transmission Date: 20141212
  Serious: Yes (Hospitalization)
  Sender: FDA-Public Use
  Company Number: PL-TEVA-488221ISR

PATIENT
  Age: 28 Year
  Sex: Male
  Weight: 68 kg

DRUGS (1)
  1. TEVAGRASTIM [Suspect]
     Indication: PROPHYLAXIS
     Dosage: 340 MICROGRAM DAILY;
     Route: 058
     Dates: start: 20140606, end: 20140606

REACTIONS (2)
  - Musculoskeletal pain [Recovered/Resolved]
  - Neuralgia [Recovered/Resolved]
